FAERS Safety Report 8977718 (Version 2)
Quarter: 2013Q1

REPORT INFORMATION
  Report Type: Spontaneous
  Country: FR (occurrence: FR)
  Receive Date: 20121219
  Receipt Date: 20130123
  Transmission Date: 20140127
  Serious: Yes (Hospitalization)
  Sender: FDA-Public Use
  Company Number: FR-JNJFOC-20121206877

PATIENT
  Age: 84 Year
  Sex: Male

DRUGS (14)
  1. RISPERDAL [Suspect]
     Indication: DEMENTIA
     Route: 048
     Dates: start: 20120929, end: 20121013
  2. IXPRIM [Suspect]
     Indication: PAIN
     Dosage: 3 TABLETS A DAY TAKEN AS NECESSARY IN CASE OF PAIN
     Route: 048
     Dates: start: 20120929, end: 20121013
  3. EFFEXOR [Suspect]
     Indication: DEPRESSION
     Route: 048
     Dates: start: 20120929, end: 20121013
  4. EFFEXOR [Suspect]
     Indication: DEPRESSION
     Route: 048
     Dates: start: 20120929, end: 20121013
  5. EFFEXOR [Suspect]
     Indication: DEPRESSION
     Route: 048
     Dates: start: 20120929, end: 20121013
  6. EFFEXOR [Suspect]
     Indication: DEPRESSION
     Route: 048
     Dates: start: 20120929, end: 20121013
  7. ELISOR [Suspect]
     Indication: DYSLIPIDAEMIA
     Route: 048
     Dates: end: 20121013
  8. TEMESTA [Suspect]
     Indication: DEPRESSION
     Route: 048
     Dates: end: 20121013
  9. CORDARONE [Suspect]
     Indication: PRODUCT USED FOR UNKNOWN INDICATION
     Dosage: ACCORDING TO CYCLE; 200 MG PER DAY EXCEPT ON WEEKEND
     Route: 048
     Dates: end: 20121013
  10. ZANIDIP [Suspect]
     Indication: PRODUCT USED FOR UNKNOWN INDICATION
     Route: 048
     Dates: end: 20121013
  11. PARIET [Suspect]
     Indication: PRODUCT USED FOR UNKNOWN INDICATION
     Route: 048
     Dates: end: 20121013
  12. LASILIX [Concomitant]
     Indication: PRODUCT USED FOR UNKNOWN INDICATION
     Route: 065
  13. KARDEGIC [Concomitant]
     Indication: PRODUCT USED FOR UNKNOWN INDICATION
     Route: 065
  14. LYRICA [Concomitant]
     Indication: PRODUCT USED FOR UNKNOWN INDICATION
     Route: 065

REACTIONS (4)
  - Liver injury [Recovered/Resolved]
  - Hepatocellular injury [Unknown]
  - Cholestasis [Unknown]
  - Hyperthermia [Unknown]
